FAERS Safety Report 8527973 (Version 2)
Quarter: 2014Q1

REPORT INFORMATION
  Report Type: Report from Study
  Country: NL (occurrence: NL)
  Receive Date: 20120424
  Receipt Date: 20140320
  Transmission Date: 20141002
  Serious: Yes (Hospitalization)
  Sender: FDA-Public Use
  Company Number: NL-ROCHE-1059284

PATIENT
  Age: 49 Year
  Sex: Female
  Weight: 54.6 kg

DRUGS (5)
  1. VEMURAFENIB [Suspect]
     Indication: METASTATIC MALIGNANT MELANOMA
     Dosage: LAST DOSE PRIOR TO SAE: ON 10 APRIL 2012
     Route: 048
     Dates: start: 20111123
  2. OXYCONTIN [Concomitant]
     Route: 065
     Dates: start: 20110802
  3. OXYCONTIN [Concomitant]
     Route: 048
     Dates: start: 20111115
  4. DESLORATADINE [Concomitant]
     Route: 048
     Dates: start: 20111115
  5. OXYNORM [Concomitant]
     Route: 048
     Dates: start: 20111115

REACTIONS (1)
  - Dysphagia [Recovered/Resolved]
